FAERS Safety Report 10270324 (Version 1)
Quarter: 2014Q2

REPORT INFORMATION
  Report Type: Spontaneous
  Country: US (occurrence: None)
  Receive Date: 20140627
  Receipt Date: 20140627
  Transmission Date: 20141212
  Serious: Yes (Hospitalization)
  Sender: FDA-Public Use
  Company Number: None

PATIENT
  Age: 62 Year
  Sex: Female
  Weight: 88.2 kg

DRUGS (19)
  1. SIMEPREVIR [Suspect]
     Indication: HEPATITIS C
     Dosage: 150 MG, 1X DAILY, PO
     Route: 048
     Dates: start: 20140328
  2. SOFOSBUVIR [Suspect]
     Dosage: 400 MG, 1X DAILY, PO
     Route: 048
  3. LOSARTAN [Concomitant]
  4. DEMADEX [Concomitant]
  5. TYLENOL [Concomitant]
  6. LANTUS [Concomitant]
  7. LACTULOSE [Concomitant]
  8. ALBUTEROL [Concomitant]
  9. OMEPRAZOLE [Concomitant]
  10. MIRAPAX [Concomitant]
  11. TUMS [Concomitant]
  12. NOVOLOG [Concomitant]
  13. ATIVAN [Concomitant]
  14. CALCIUM [Concomitant]
  15. PROZAC [Concomitant]
  16. SYNTHROID [Concomitant]
  17. RIFAXIMIN [Concomitant]
  18. NITROSTAT [Concomitant]
  19. MULTIVITAMINS [Concomitant]

REACTIONS (5)
  - Gastrooesophageal reflux disease [None]
  - Vision blurred [None]
  - Dizziness [None]
  - Dyspnoea [None]
  - Chest pain [None]
